FAERS Safety Report 4920087-7 (Version None)
Quarter: 2006Q1

REPORT INFORMATION
  Report Type: 
  Country: None (occurrence: None)
  Receive Date: 20060223
  Receipt Date: 20060215
  Transmission Date: 20060701
  Serious: Yes (Hospitalization)
  Sender: FDA-Public Use
  Company Number: AU-BOEHRINGER INGELHEIM PHARMACEUTICALS, INC.-2006-BP-01803AU

PATIENT
  Age: 80 Year
  Sex: Female

DRUGS (1)
  1. MICARDIS [Suspect]

REACTIONS (1)
  - RENAL FAILURE ACUTE [None]
